FAERS Safety Report 10042947 (Version 1)
Quarter: 2014Q1

REPORT INFORMATION
  Report Type: Spontaneous
  Country: FR (occurrence: FR)
  Receive Date: 20140328
  Receipt Date: 20140328
  Transmission Date: 20141002
  Serious: Yes (Hospitalization)
  Sender: FDA-Public Use
  Company Number: FR-ASTRAZENECA-2014SE19968

PATIENT
  Age: 973 Month
  Sex: Male

DRUGS (4)
  1. ATACAND [Suspect]
     Route: 048
     Dates: start: 20130724, end: 20131011
  2. SILODYX [Suspect]
     Indication: BENIGN PROSTATIC HYPERPLASIA
     Route: 048
     Dates: start: 20130724
  3. KARDEGIC [Concomitant]
     Route: 048
     Dates: end: 20131012
  4. OGAST [Concomitant]
     Route: 048

REACTIONS (2)
  - Malaise [Recovered/Resolved]
  - Orthostatic hypotension [Recovered/Resolved]
